FAERS Safety Report 16360906 (Version 1)
Quarter: 2019Q2

REPORT INFORMATION
  Report Type: Spontaneous
  Country: JP (occurrence: JP)
  Receive Date: 20190528
  Receipt Date: 20190528
  Transmission Date: 20190711
  Serious: Yes (Other)
  Sender: FDA-Public Use
  Company Number: JP-UCBSA-2019021330

PATIENT
  Age: 7 Year
  Sex: Female
  Weight: 10 kg

DRUGS (12)
  1. NITRAZEPAM [Concomitant]
     Active Substance: NITRAZEPAM
     Indication: EPILEPSY
     Route: 050
  2. ANTIBIOTICS-RESISTANT LACTIC ACID BACTERIAE [Concomitant]
     Active Substance: UNSPECIFIED INGREDIENT
     Route: 050
  3. PHENOBARBITAL. [Concomitant]
     Active Substance: PHENOBARBITAL
     Indication: EPILEPSY
     Route: 050
  4. TRIHEXYPHENIDYL HYDROCHLORIDE. [Concomitant]
     Active Substance: TRIHEXYPHENIDYL HYDROCHLORIDE
     Route: 050
  5. PRANLUKAST [Concomitant]
     Active Substance: PRANLUKAST
     Route: 050
  6. VIMPAT [Suspect]
     Active Substance: LACOSAMIDE
     Indication: EPILEPSY
     Dosage: 60 MILLIGRAM, 2X/DAY (BID)
     Dates: start: 20180125
  7. SODIUM CHLORIDE. [Concomitant]
     Active Substance: SODIUM CHLORIDE
     Route: 050
  8. CARBOCISTEINE [Concomitant]
     Active Substance: CARBOCYSTEINE
     Indication: PRODUCT USED FOR UNKNOWN INDICATION
     Route: 050
  9. AMBROXOL HYDROCHLORIDE [Concomitant]
     Active Substance: AMBROXOL HYDROCHLORIDE
     Route: 050
  10. POTASSIUM GLUCONATE [Concomitant]
     Active Substance: POTASSIUM GLUCONATE
     Route: 050
  11. PERAMPANEL [Concomitant]
     Active Substance: PERAMPANEL
     Indication: EPILEPSY
     Route: 050
     Dates: start: 20170724
  12. ALLOPURINOL. [Concomitant]
     Active Substance: ALLOPURINOL
     Route: 050

REACTIONS (1)
  - Pancytopenia [Recovering/Resolving]

NARRATIVE: CASE EVENT DATE: 20180425
